FAERS Safety Report 12608270 (Version 1)
Quarter: 2016Q3

REPORT INFORMATION
  Report Type: Spontaneous
  Country: TR (occurrence: TR)
  Receive Date: 20160729
  Receipt Date: 20160729
  Transmission Date: 20161109
  Serious: Yes (Hospitalization)
  Sender: FDA-Public Use
  Company Number: TR-BAYER-2016-140964

PATIENT
  Age: 55 Year
  Sex: Male

DRUGS (1)
  1. VARDENAFIL (EXTENDED RELEASE) [Suspect]
     Active Substance: VARDENAFIL
     Indication: ERECTILE DYSFUNCTION
     Dosage: 10 MG, UNK

REACTIONS (1)
  - Subarachnoid haemorrhage [None]
